FAERS Safety Report 5711567-5 (Version None)
Quarter: 2008Q2

REPORT INFORMATION
  Report Type: 
  Country: None (occurrence: None)
  Receive Date: 20080416
  Receipt Date: 20080407
  Transmission Date: 20081010
  Serious: Yes (Hospitalization)
  Sender: FDA-Public Use
  Company Number: THQ2008A00639

PATIENT
  Age: 56 Year
  Sex: Male

DRUGS (8)
  1. ACTOS [Suspect]
     Dosage: 30 MG (30 MG, 1 IN 1 D) PER ORAL
     Route: 048
     Dates: start: 20080228
  2. VIAGRA TABLET 100 MG (SILDENAFIL CITRATE) [Concomitant]
  3. JANUVIA TABLET FILMOMHULD 100 MG [Concomitant]
  4. SIMVASTATINE PCH TABLET FILMOMHULD 20 G (SIMVASTATIN) [Concomitant]
  5. ZOFIL TABLET OMHULD 30 MG (ZOFENOPRIL) [Concomitant]
  6. NOVORAPID FLEXPEN INJVLST 100 E/ML WWSP 3 ML (INSULIN ASPART) [Concomitant]
  7. METFORMINE HCL PCH TABLET 1000 MG (METFORMIN) [Concomitant]
  8. CARBASALAATCALCIUM CARDIO PCH SACHET 100 MG (CARBASALATE CALCIUM) [Concomitant]

REACTIONS (3)
  - BACK PAIN [None]
  - CHEST PAIN [None]
  - PANCREATITIS [None]
